FAERS Safety Report 6611802-5 (Version None)
Quarter: 2010Q1

REPORT INFORMATION
  Report Type: 
  Country: None (occurrence: None)
  Receive Date: 20100303
  Receipt Date: 20100222
  Transmission Date: 20100710
  Serious: Yes (Hospitalization)
  Sender: FDA-Public Use
  Company Number: JP-ROCHE-685910

PATIENT
  Age: 54 Year
  Sex: Male

DRUGS (16)
  1. TOCILIZUMAB [Suspect]
     Indication: RHEUMATOID ARTHRITIS
     Route: 041
     Dates: start: 20080815, end: 20080815
  2. TOCILIZUMAB [Suspect]
     Route: 041
     Dates: start: 20080912, end: 20080912
  3. TOCILIZUMAB [Suspect]
     Route: 041
     Dates: start: 20081010, end: 20081010
  4. TOCILIZUMAB [Suspect]
     Route: 041
     Dates: start: 20081105, end: 20081105
  5. TOCILIZUMAB [Suspect]
     Route: 041
     Dates: start: 20081210, end: 20081210
  6. TOCILIZUMAB [Suspect]
     Route: 041
     Dates: start: 20090107, end: 20090107
  7. TOCILIZUMAB [Suspect]
     Route: 041
     Dates: start: 20090204, end: 20090204
  8. TOCILIZUMAB [Suspect]
     Route: 041
     Dates: start: 20090101
  9. TOCILIZUMAB [Suspect]
     Route: 041
     Dates: start: 20090304, end: 20090304
  10. TOCILIZUMAB [Suspect]
     Route: 041
     Dates: start: 20090401, end: 20090401
  11. TOCILIZUMAB [Suspect]
     Route: 041
     Dates: start: 20090430, end: 20090430
  12. TOCILIZUMAB [Suspect]
     Route: 041
     Dates: start: 20090527, end: 20090527
  13. TOCILIZUMAB [Suspect]
     Route: 041
     Dates: start: 20090624, end: 20090624
  14. TOCILIZUMAB [Suspect]
     Route: 041
     Dates: start: 20090722
  15. TOCILIZUMAB [Suspect]
     Route: 041
     Dates: start: 20100217
  16. ISCOTIN [Suspect]
     Indication: ANTIBIOTIC PROPHYLAXIS
     Dosage: DOSE FORM: PERORAL AGENT. DISCONTINUED
     Route: 048
     Dates: start: 20080725, end: 20080912

REACTIONS (5)
  - ALANINE AMINOTRANSFERASE INCREASED [None]
  - ASPARTATE AMINOTRANSFERASE INCREASED [None]
  - GASTROENTERITIS [None]
  - HEPATIC FUNCTION ABNORMAL [None]
  - HYPERLIPIDAEMIA [None]
